FAERS Safety Report 4996982-X (Version None)
Quarter: 2006Q2

REPORT INFORMATION
  Report Type: 
  Country: None (occurrence: None)
  Receive Date: 20060509
  Receipt Date: 20060427
  Transmission Date: 20061013
  Serious: Yes (Disabling)
  Sender: FDA-Public Use
  Company Number: CH-BRISTOL-MYERS SQUIBB COMPANY-13359898

PATIENT
  Age: 13 Year
  Sex: Female
  Weight: 35 kg

DRUGS (1)
  1. METHOTREXATE [Suspect]
     Indication: JUVENILE ARTHRITIS
     Route: 058
     Dates: start: 20051207, end: 20060211

REACTIONS (5)
  - BALANCE DISORDER [None]
  - DIARRHOEA [None]
  - DIPLOPIA [None]
  - VISION BLURRED [None]
  - VOMITING [None]
